FAERS Safety Report 9402460 (Version 1)
Quarter: 2013Q3

REPORT INFORMATION
  Report Type: Spontaneous
  Country: JP (occurrence: JP)
  Receive Date: 20130716
  Receipt Date: 20130716
  Transmission Date: 20140515
  Serious: Yes (Other)
  Sender: FDA-Public Use
  Company Number: JP-PFIZER INC-2013204037

PATIENT
  Sex: 0

DRUGS (1)
  1. GENOTROPIN TC [Suspect]
     Dosage: UNK

REACTIONS (3)
  - Fracture [Unknown]
  - Increased appetite [Unknown]
  - Affect lability [Unknown]
